FAERS Safety Report 16341371 (Version 1)
Quarter: 2019Q2

REPORT INFORMATION
  Report Type: Spontaneous
  Country: US (occurrence: US)
  Receive Date: 20190522
  Receipt Date: 20190522
  Transmission Date: 20190711
  Serious: No
  Sender: FDA-Public Use
  Company Number: US-ROCHE-2263798

PATIENT
  Age: 67 Year
  Sex: Female
  Weight: 88.53 kg

DRUGS (2)
  1. XOFLUZA [Suspect]
     Active Substance: BALOXAVIR MARBOXIL
     Indication: INFLUENZA
     Dosage: 2 PILLS.
     Route: 065
     Dates: start: 20190204, end: 20190204
  2. TYLENOL [Concomitant]
     Active Substance: ACETAMINOPHEN

REACTIONS (7)
  - Diarrhoea [Recovered/Resolved]
  - Dehydration [Unknown]
  - Pollakiuria [Recovered/Resolved]
  - Dyskinesia [Unknown]
  - Dry mouth [Not Recovered/Not Resolved]
  - Nausea [Recovered/Resolved]
  - Insomnia [Unknown]

NARRATIVE: CASE EVENT DATE: 20190204
